FAERS Safety Report 8496150-3 (Version None)
Quarter: 2012Q3

REPORT INFORMATION
  Report Type: 
  Country: None (occurrence: None)
  Receive Date: 20120709
  Receipt Date: 20120628
  Transmission Date: 20120928
  Serious: No
  Sender: FDA-Public Use
  Company Number: US-JNJFOC-20120700688

PATIENT
  Age: 47 Year
  Sex: Female
  Weight: 83.01 kg

DRUGS (4)
  1. FENTANYL-100 [Suspect]
     Indication: MULTIPLE SCLEROSIS
     Dosage: 12.5 UG/HR+25 UG/HR
     Route: 062
     Dates: start: 20120501
  2. FENTANYL-100 [Suspect]
     Route: 062
     Dates: start: 20110101
  3. FENTANYL-100 [Suspect]
     Dosage: 12.5 UG/HR+25 UG/HR
     Route: 062
     Dates: end: 20120501
  4. FENTANYL [Suspect]
     Indication: MULTIPLE SCLEROSIS
     Route: 062
     Dates: start: 20120501, end: 20120501

REACTIONS (7)
  - NAUSEA [None]
  - HEADACHE [None]
  - VOMITING [None]
  - HYPERHIDROSIS [None]
  - DERMATITIS CONTACT [None]
  - PRODUCT QUALITY ISSUE [None]
  - WRONG TECHNIQUE IN DRUG USAGE PROCESS [None]
